FAERS Safety Report 8838214 (Version 2)
Quarter: 2012Q4

REPORT INFORMATION
  Report Type: 
  Country: CA (occurrence: CA)
  Receive Date: 20121012
  Receipt Date: 20121024
  Transmission Date: 20130627
  Serious: Yes (Hospitalization)
  Sender: FDA-Public Use
  Company Number: CA-B.I. PHARMACEUTICALS,INC./RIDGEFIELD-2012-CN-02075CN

PATIENT
  Age: 62 Year
  Sex: Female

DRUGS (1)
  1. PRADAX [Suspect]
     Indication: ANTICOAGULANT THERAPY
     Dosage: 300 mg
     Route: 048
     Dates: start: 201207, end: 20120928

REACTIONS (1)
  - Cardiac valve replacement complication [Not Recovered/Not Resolved]
